FAERS Safety Report 25086970 (Version 1)
Quarter: 2025Q1

REPORT INFORMATION
  Report Type: Report from Study
  Country: US (occurrence: US)
  Receive Date: 20250318
  Receipt Date: 20250318
  Transmission Date: 20250409
  Serious: Yes (Other)
  Sender: ROCHE
  Company Number: US-ROCHE-2959183

PATIENT
  Age: 71 Year
  Sex: Female

DRUGS (10)
  1. XOLAIR PFS [Suspect]
     Active Substance: OMALIZUMAB
     Indication: Chronic spontaneous urticaria
     Dosage: INJECT THE CONTENTS OF 1 DEVICE(S) UNDER THE SKIN EVERY 6 WEEK(S)
     Route: 058
     Dates: start: 20231031
  2. XOLAIR PFS [Suspect]
     Active Substance: OMALIZUMAB
  3. METFORMIN [Concomitant]
     Active Substance: METFORMIN HYDROCHLORIDE
  4. ATORVASTATIN [Concomitant]
     Active Substance: ATORVASTATIN
  5. EPIPEN [Concomitant]
     Active Substance: EPINEPHRINE
  6. DIPHENHYDRAMINE [Concomitant]
     Active Substance: DIPHENHYDRAMINE
  7. LEVOCETIRIZINE [Concomitant]
     Active Substance: LEVOCETIRIZINE
  8. LISINOPRIL [Concomitant]
     Active Substance: LISINOPRIL
  9. TIROSINT [Concomitant]
     Active Substance: LEVOTHYROXINE SODIUM
  10. FUROSEMIDE [Concomitant]
     Active Substance: FUROSEMIDE

REACTIONS (4)
  - Off label use [Unknown]
  - Deafness [Unknown]
  - Memory impairment [Unknown]
  - Pruritus [Unknown]
